FAERS Safety Report 10076889 (Version 1)
Quarter: 2014Q2

REPORT INFORMATION
  Report Type: Spontaneous
  Country: US (occurrence: US)
  Receive Date: 20140414
  Receipt Date: 20140414
  Transmission Date: 20141212
  Serious: Yes (Other)
  Sender: FDA-Public Use
  Company Number: US-GLAXOSMITHKLINE-A1066529A

PATIENT
  Age: 75 Year
  Sex: Male
  Weight: 63.2 kg

DRUGS (16)
  1. BREO ELLIPTA [Suspect]
     Indication: CHRONIC OBSTRUCTIVE PULMONARY DISEASE
     Dosage: 1PUFF PER DAY
     Route: 065
     Dates: start: 20140211, end: 20140313
  2. DELTASONE [Suspect]
     Indication: PRODUCT USED FOR UNKNOWN INDICATION
     Dosage: 10MG IN THE MORNING
     Route: 048
  3. SYMBICORT [Suspect]
     Indication: PRODUCT USED FOR UNKNOWN INDICATION
     Dosage: 2PUFF TWICE PER DAY
     Route: 055
  4. SPIRIVA [Suspect]
     Indication: PRODUCT USED FOR UNKNOWN INDICATION
     Dosage: 18MCG PER DAY
     Route: 055
  5. MUCOMYST [Suspect]
     Indication: PRODUCT USED FOR UNKNOWN INDICATION
     Route: 055
  6. TYLENOL [Concomitant]
  7. PROVENTIL [Concomitant]
  8. PROVENTIL NEBULIZER [Concomitant]
  9. ELAVIL [Concomitant]
  10. LASIX [Concomitant]
  11. MUCINEX [Concomitant]
  12. NORCO [Concomitant]
  13. NAPROSYN [Concomitant]
  14. ACIPHEX [Concomitant]
  15. OCEAN [Concomitant]
  16. METHOTREXATE [Concomitant]
     Indication: RHEUMATOID ARTHRITIS

REACTIONS (17)
  - Spinal compression fracture [Unknown]
  - Vision blurred [Recovered/Resolved]
  - Anxiety [Recovered/Resolved]
  - Dyspnoea [Not Recovered/Not Resolved]
  - Osteoporosis [Unknown]
  - Back pain [Unknown]
  - Productive cough [Unknown]
  - Hypoxia [Unknown]
  - Pneumonia [Unknown]
  - Pulmonary mass [Unknown]
  - Pulmonary mycosis [Unknown]
  - Lung neoplasm malignant [Unknown]
  - Squamous cell carcinoma of lung [Unknown]
  - Musculoskeletal chest pain [Unknown]
  - Chest pain [Unknown]
  - Forced expiratory volume decreased [Unknown]
  - Sputum discoloured [Unknown]
